FAERS Safety Report 7243244-6 (Version None)
Quarter: 2011Q1

REPORT INFORMATION
  Report Type: 
  Country: None (occurrence: None)
  Receive Date: 20110125
  Receipt Date: 20110120
  Transmission Date: 20110831
  Serious: Yes (Hospitalization)
  Sender: FDA-Public Use
  Company Number: SE-ABBOTT-11P-150-0700147-00

PATIENT
  Sex: Male

DRUGS (3)
  1. HUMIRA [Suspect]
     Indication: CROHN'S DISEASE
     Dates: start: 20100101, end: 20100801
  2. HUMIRA [Suspect]
     Dates: start: 20101101
  3. AZATHIOPRIN [Concomitant]
     Indication: CROHN'S DISEASE

REACTIONS (5)
  - PETECHIAE [None]
  - EPISTAXIS [None]
  - IDIOPATHIC THROMBOCYTOPENIC PURPURA [None]
  - CYTOMEGALOVIRUS INFECTION [None]
  - RASH [None]
